FAERS Safety Report 6132392-X (Version None)
Quarter: 2009Q1

REPORT INFORMATION
  Report Type: 
  Country: None (occurrence: None)
  Receive Date: 20090325
  Receipt Date: 20090318
  Transmission Date: 20090719
  Serious: Yes (Other)
  Sender: FDA-Public Use
  Company Number: PHHY2009JP07478

PATIENT
  Sex: Female

DRUGS (12)
  1. DIOVAN [Suspect]
     Dosage: 80 MG, BID
     Route: 048
     Dates: start: 20070925, end: 20080527
  2. DIOVAN [Suspect]
     Dosage: 80 MG, ONCE/SINGLE
     Route: 048
     Dates: start: 20080528
  3. LASIX [Suspect]
     Dosage: 40 MG, UNK
     Route: 048
     Dates: start: 20080401
  4. NORVASC [Concomitant]
     Indication: HYPERTENSION
     Dosage: 2.5 MG, UNK
     Route: 048
     Dates: start: 20070626
  5. NORVASC [Concomitant]
     Dosage: 10 MG, UNK
     Route: 048
  6. NORVASC [Concomitant]
     Dosage: 5 MG, UNK
     Route: 048
     Dates: end: 20080610
  7. BLOPRESS [Concomitant]
     Indication: HYPERTENSION
     Dosage: 4 MG, UNK
     Route: 048
     Dates: start: 20070212, end: 20070924
  8. ALDACTONE [Concomitant]
     Indication: HYPERTENSION
     Dosage: 25 MG, UNK
     Route: 048
     Dates: start: 20080425
  9. CYANOCOBALAMIN [Concomitant]
     Dosage: 1500 UG, UNK
     Route: 048
     Dates: start: 20070925
  10. PANTOSIN [Concomitant]
     Dosage: 3 G, UNK
     Route: 048
     Dates: start: 20070925
  11. JU-KAMA [Concomitant]
     Dosage: 1 G, UNK
     Route: 048
     Dates: start: 20070925
  12. SENNOSIDE [Concomitant]
     Dosage: 24 MG, UNK
     Route: 048
     Dates: start: 20070925

REACTIONS (2)
  - BLOOD POTASSIUM DECREASED [None]
  - BLOOD UREA INCREASED [None]
